FAERS Safety Report 9439370 (Version 1)
Quarter: 2013Q3

REPORT INFORMATION
  Report Type: Spontaneous
  Country: US (occurrence: US)
  Receive Date: 20130805
  Receipt Date: 20130805
  Transmission Date: 20140515
  Serious: Yes (Other)
  Sender: FDA-Public Use
  Company Number: US-AMGEN-USASP2013053880

PATIENT
  Age: 61 Year
  Sex: Male

DRUGS (1)
  1. ENBREL [Suspect]
     Indication: ANKYLOSING SPONDYLITIS
     Dosage: 50 MG, QWK
     Route: 058

REACTIONS (11)
  - Henoch-Schonlein purpura [Unknown]
  - Mesangioproliferative glomerulonephritis [Unknown]
  - Hypersensitivity vasculitis [Unknown]
  - Rash [Unknown]
  - Fatigue [Unknown]
  - Synovitis [Unknown]
  - Petechiae [Unknown]
  - Oedema peripheral [Unknown]
  - Red blood cell sedimentation rate increased [Unknown]
  - Proteinuria [Unknown]
  - Haematuria [Unknown]
